FAERS Safety Report 8966930 (Version 2)
Quarter: 2019Q1

REPORT INFORMATION
  Report Type: Spontaneous
  Country: ES (occurrence: ES)
  Receive Date: 20121214
  Receipt Date: 20190208
  Transmission Date: 20190418
  Serious: Yes (Hospitalization, Other)
  Sender: FDA-Public Use
  Company Number: ES-PFIZER INC-2006097140

PATIENT
  Age: 39 Year
  Sex: Male

DRUGS (6)
  1. VIRAMUNE [Suspect]
     Active Substance: NEVIRAPINE
     Indication: HIV INFECTION
     Dosage: 200 MG, 2X/DAY
     Route: 048
     Dates: start: 200506, end: 20060507
  2. DALACIN [Suspect]
     Active Substance: CLINDAMYCIN
     Indication: HIV INFECTION
     Dosage: 150 MG, 3X/DAY
     Route: 048
     Dates: start: 200506, end: 20060507
  3. VIREAD [Suspect]
     Active Substance: TENOFOVIR DISOPROXIL FUMARATE
     Indication: HIV INFECTION
     Dosage: 245 MG, 1X/DAY
     Route: 048
     Dates: start: 200506, end: 20060507
  4. IBUPROFEN. [Suspect]
     Active Substance: IBUPROFEN
     Indication: PAIN
     Dosage: 600 MG, 3X/DAY
     Route: 048
     Dates: start: 20060401, end: 20060408
  5. CLAMOXYL [AMOXICILLIN TRIHYDRATE] [Suspect]
     Active Substance: AMOXICILLIN
     Indication: CELLULITIS
     Dosage: 750 MG, 3X/DAY
     Route: 048
     Dates: start: 20060401, end: 20060415
  6. EPIVIR [Suspect]
     Active Substance: LAMIVUDINE
     Indication: HIV INFECTION
     Dosage: 150 MG, 1X/DAY
     Route: 048
     Dates: start: 200506, end: 20060507

REACTIONS (1)
  - Hepatitis cholestatic [Recovered/Resolved]

NARRATIVE: CASE EVENT DATE: 20060423
